FAERS Safety Report 22214179 (Version 1)
Quarter: 2023Q2

REPORT INFORMATION
  Report Type: Spontaneous
  Country: ES (occurrence: ES)
  Receive Date: 20230414
  Receipt Date: 20230414
  Transmission Date: 20230722
  Serious: Yes (Death)
  Sender: FDA-Public Use
  Company Number: None

PATIENT
  Sex: Male

DRUGS (2)
  1. MORPHINE SULFATE [Interacting]
     Active Substance: MORPHINE SULFATE
     Indication: Tumour pain
     Dosage: UNK
     Route: 048
     Dates: start: 20211207, end: 20211214
  2. FENTANYL TRANSDERMAL SYSTEM [Interacting]
     Active Substance: FENTANYL
     Indication: Tumour pain
     Dosage: UNK
     Route: 062
     Dates: start: 2021, end: 20211214

REACTIONS (3)
  - Aspiration [Fatal]
  - Product substitution error [Fatal]
  - Accidental overdose [Fatal]

NARRATIVE: CASE EVENT DATE: 20211214
